FAERS Safety Report 23674159 (Version 1)
Quarter: 2024Q1

REPORT INFORMATION
  Report Type: Spontaneous
  Country: US (occurrence: None)
  Receive Date: 20240326
  Receipt Date: 20240326
  Transmission Date: 20240410
  Serious: No
  Sender: FDA-Public Use
  Company Number: None

PATIENT
  Age: 42 Year
  Sex: Male

DRUGS (1)
  1. GENOTROPIN [Suspect]
     Active Substance: SOMATROPIN
     Indication: Hypothalamo-pituitary disorder
     Dosage: OTHER FREQUENCY : ONCE IN THE MORNIN;?
     Route: 058
     Dates: start: 20230720

REACTIONS (1)
  - Surgery [None]

NARRATIVE: CASE EVENT DATE: 20240311
